FAERS Safety Report 6416484-3 (Version None)
Quarter: 2009Q4

REPORT INFORMATION
  Report Type: 
  Country: None (occurrence: None)
  Receive Date: 20091027
  Receipt Date: 20091013
  Transmission Date: 20100525
  Serious: Yes (Hospitalization, Other)
  Sender: FDA-Public Use
  Company Number: PHHY2009JP08107

PATIENT
  Sex: Female
  Weight: 40 kg

DRUGS (9)
  1. ICL670A ICL+DISTAB [Suspect]
     Indication: MYELODYSPLASTIC SYNDROME
     Dosage: 500 MG DAILY
     Route: 048
     Dates: start: 20080802, end: 20081106
  2. ICL670A ICL+DISTAB [Suspect]
     Indication: IRON OVERLOAD
     Dosage: 1000MG/DAY
     Route: 048
     Dates: start: 20081107, end: 20090402
  3. ICL670A ICL+DISTAB [Suspect]
     Dosage: 500 MG DAILY
     Route: 048
     Dates: start: 20090403, end: 20090607
  4. ICL670A ICL+DISTAB [Suspect]
     Dosage: 500 MG DAILY
     Route: 048
     Dates: start: 20090703
  5. ALLEGRA [Suspect]
     Indication: PRURITUS
     Dosage: 120 MG DAILY
     Route: 048
     Dates: start: 20090501, end: 20090608
  6. JUZENTAIHOTO [Concomitant]
     Indication: MYELODYSPLASTIC SYNDROME
     Dosage: 7.5 G
     Route: 048
     Dates: start: 20060206, end: 20090803
  7. ACINON [Concomitant]
     Dosage: 150MG
     Route: 048
     Dates: start: 20060206, end: 20090831
  8. URSO 250 [Concomitant]
     Indication: PROPHYLAXIS
     Dosage: 150 MG
     Route: 048
     Dates: start: 20081127, end: 20090416
  9. SODIUM CHLORIDE [Concomitant]
     Dosage: 4.5 G
     Route: 048
     Dates: start: 20080819, end: 20090803

REACTIONS (6)
  - AGRANULOCYTOSIS [None]
  - BLOOD ALKALINE PHOSPHATASE INCREASED [None]
  - DRUG INEFFECTIVE [None]
  - HYPONATRAEMIA [None]
  - OSTEOPOROSIS [None]
  - SPINAL COMPRESSION FRACTURE [None]
